FAERS Safety Report 7351272-5 (Version None)
Quarter: 2011Q1

REPORT INFORMATION
  Report Type: 
  Country: None (occurrence: None)
  Receive Date: 20110314
  Receipt Date: 20110309
  Transmission Date: 20110831
  Serious: Yes (Hospitalization, Other)
  Sender: FDA-Public Use
  Company Number: DE-BAYER-2011-004613

PATIENT
  Sex: Male
  Weight: 112 kg

DRUGS (4)
  1. ACETYLSALICYLIC ACID SRT [Suspect]
     Route: 048
  2. CLOPIDOGREL [Interacting]
     Indication: ACUTE CORONARY SYNDROME
     Route: 048
  3. RIVAROXABAN [Interacting]
     Indication: ACUTE CORONARY SYNDROME
     Dosage: TABLET 2.5 MG OR 5 MG
     Route: 048
     Dates: start: 20101105
  4. RIVAROXABAN [Interacting]
     Dosage: TABLET 2.5 MG OR 5 MG
     Dates: start: 20101104, end: 20101104

REACTIONS (3)
  - CARDIAC FAILURE [None]
  - ACUTE MYOCARDIAL INFARCTION [None]
  - POST PROCEDURAL HAEMATOMA [None]
